FAERS Safety Report 13095028 (Version 1)
Quarter: 2017Q1

REPORT INFORMATION
  Report Type: Spontaneous
  Country: US (occurrence: US)
  Receive Date: 20170106
  Receipt Date: 20170106
  Transmission Date: 20170428
  Serious: Yes (Death)
  Sender: FDA-Public Use
  Company Number: US-BEH-2017076883

PATIENT
  Age: 55 Year
  Sex: Male
  Weight: 102.4 kg

DRUGS (12)
  1. ZEMAIRA [Suspect]
     Active Substance: .ALPHA.1-PROTEINASE INHIBITOR HUMAN
     Dosage: 60 MG/KG, UNK
     Route: 042
  2. SPIRONOLACTONE. [Concomitant]
     Active Substance: SPIRONOLACTONE
  3. DESONIDE. [Concomitant]
     Active Substance: DESONIDE
  4. CIPROFLOXACIN. [Concomitant]
     Active Substance: CIPROFLOXACIN
  5. ZEMAIRA [Suspect]
     Active Substance: .ALPHA.1-PROTEINASE INHIBITOR HUMAN
     Indication: ALPHA-1 ANTI-TRYPSIN DEFICIENCY
     Dosage: 60 MG/KG, UNK
     Route: 042
     Dates: start: 20150312, end: 201605
  6. LASIX [Concomitant]
     Active Substance: FUROSEMIDE
  7. CLOBETASOL [Concomitant]
     Active Substance: CLOBETASOL
  8. ATIVAN [Concomitant]
     Active Substance: LORAZEPAM
  9. LACTULOSE. [Concomitant]
     Active Substance: LACTULOSE
  10. COUMADIN [Concomitant]
     Active Substance: WARFARIN SODIUM
  11. LORTAB [Concomitant]
     Active Substance: ACETAMINOPHEN\HYDROCODONE BITARTRATE
  12. LEVOTHYROXINE. [Concomitant]
     Active Substance: LEVOTHYROXINE

REACTIONS (1)
  - Death [Fatal]

NARRATIVE: CASE EVENT DATE: 201605
